FAERS Safety Report 18950092 (Version 2)
Quarter: 2021Q1

REPORT INFORMATION
  Report Type: Other
  Country: US (occurrence: US)
  Receive Date: 20210228
  Receipt Date: 20210329
  Transmission Date: 20210420
  Serious: No
  Sender: FDA-Public Use
  Company Number: US-NEUROCRINE BIOSCIENCES INC.-2021NBI00762

PATIENT

DRUGS (4)
  1. INGREZZA [Suspect]
     Active Substance: VALBENAZINE
     Dosage: 80 MILLIGRAM QD
     Route: 048
     Dates: start: 20190125, end: 20210214
  2. PROZAC [Suspect]
     Active Substance: FLUOXETINE HYDROCHLORIDE
     Indication: PRODUCT USED FOR UNKNOWN INDICATION
     Dosage: UNK
     Dates: start: 2021
  3. INGREZZA [Suspect]
     Active Substance: VALBENAZINE
     Dosage: 40 MILLIGRAM QD
     Route: 048
     Dates: start: 20210215
  4. INGREZZA [Suspect]
     Active Substance: VALBENAZINE
     Indication: TARDIVE DYSKINESIA
     Dosage: 40 MILLIGRAM QD
     Route: 048
     Dates: start: 20190117, end: 20190124

REACTIONS (3)
  - Formication [Unknown]
  - Drug interaction [Unknown]
  - Feeling abnormal [Unknown]

NARRATIVE: CASE EVENT DATE: 2021
